FAERS Safety Report 9800354 (Version 2)
Quarter: 2014Q1

REPORT INFORMATION
  Report Type: Report from Study
  Country: US (occurrence: US)
  Receive Date: 20140106
  Receipt Date: 20140106
  Transmission Date: 20141002
  Serious: Yes (Hospitalization)
  Sender: FDA-Public Use
  Company Number: US-BRISTOL-MYERS SQUIBB COMPANY-19680644

PATIENT
  Age: 56 Year
  Sex: Female

DRUGS (15)
  1. ETOPOSIDE [Suspect]
     Indication: SMALL CELL LUNG CANCER
     Route: 042
     Dates: start: 20130910, end: 20131003
  2. CARBOPLATIN [Suspect]
     Indication: SMALL CELL LUNG CANCER
     Route: 042
     Dates: start: 20130910, end: 20131003
  3. ATIVAN [Concomitant]
     Dates: start: 20130830
  4. LORTAB [Concomitant]
     Dates: start: 2013
  5. PERCOCET [Concomitant]
     Dates: start: 20130904
  6. COMBIVENT [Concomitant]
     Dates: start: 20130815
  7. VITAMIN D [Concomitant]
     Dates: start: 201308
  8. MULTIVITAMIN [Concomitant]
     Dates: start: 201308
  9. CALCIUM [Concomitant]
     Dates: start: 201308
  10. AMBIEN [Concomitant]
     Dates: start: 20130910
  11. MEGESTROL [Concomitant]
     Dates: start: 20131001
  12. TUSSIONEX [Concomitant]
     Dates: start: 20131001
  13. ARANESP [Concomitant]
     Dates: start: 20131016
  14. COMPAZINE [Concomitant]
     Dates: start: 20130910
  15. TESSALON PERLE [Concomitant]
     Dates: start: 20131016

REACTIONS (2)
  - Cardiac failure congestive [Recovered/Resolved]
  - Sepsis [Recovered/Resolved]
